FAERS Safety Report 5398644-6 (Version None)
Quarter: 2007Q3

REPORT INFORMATION
  Report Type: 
  Country: None (occurrence: None)
  Receive Date: 20070726
  Receipt Date: 20070514
  Transmission Date: 20080115
  Serious: No
  Sender: FDA-Public Use
  Company Number: US-AMGEN-KDL224548

PATIENT
  Sex: Female

DRUGS (5)
  1. NEUPOGEN [Suspect]
     Indication: INFECTION
     Dates: end: 20060901
  2. EPOGEN [Suspect]
     Indication: PRE-EXISTING DISEASE
     Dates: end: 20060901
  3. RIBAVIRIN [Concomitant]
  4. INTERFERON [Concomitant]
  5. UNSPECIFIED MEDICATION [Concomitant]

REACTIONS (2)
  - BONE PAIN [None]
  - HYPOAESTHESIA [None]
